FAERS Safety Report 4294130-5 (Version None)
Quarter: 2004Q1

REPORT INFORMATION
  Report Type: 
  Country: None (occurrence: None)
  Receive Date: 20040212
  Receipt Date: 20040212
  Transmission Date: 20041129
  Serious: Yes (Life-Threatening, Hospitalization)
  Sender: FDA-Public Use
  Company Number: None

PATIENT
  Sex: Female
  Weight: 88 kg

DRUGS (1)
  1. THALIDOMIDE 50 MG PO Q HS/CELGENE [Suspect]
     Indication: NON-SMALL CELL LUNG CANCER
     Dosage: 50 MG Q HS PO
     Route: 048
     Dates: start: 20031015, end: 20041210

REACTIONS (3)
  - ATRIAL FIBRILLATION [None]
  - DYSARTHRIA [None]
  - FACIAL PALSY [None]
